FAERS Safety Report 15639775 (Version 3)
Quarter: 2019Q2

REPORT INFORMATION
  Report Type: Report from Study
  Country: ZA (occurrence: ZA)
  Receive Date: 20181120
  Receipt Date: 20190517
  Transmission Date: 20190711
  Serious: Yes (Life-Threatening)
  Sender: FDA-Public Use
  Company Number: ZA-SA-2018SA312578

PATIENT
  Age: 59 Year
  Sex: Male

DRUGS (8)
  1. ADCO-SIMVASTATIN [Concomitant]
     Active Substance: SIMVASTATIN
     Dosage: 10 MG, HS
     Dates: start: 20181114
  2. CARDURAXL [Concomitant]
     Active Substance: DOXAZOSIN MESYLATE
     Dosage: UNK
     Dates: start: 20181114
  3. INSULIN GLARGINE [Suspect]
     Active Substance: INSULIN GLARGINE
     Dosage: UNK
  4. DIAGLUCIDE [Concomitant]
     Active Substance: GLICLAZIDE
     Dosage: 60 MG, QD (AFTER BREAKFAST)
     Dates: start: 20181101
  5. OPTISULIN (INSULIN GLARGINE) [Suspect]
     Active Substance: INSULIN GLARGINE
     Dosage: 40 U, HS
     Dates: start: 20181023
  6. GLUCOPHAGE [Concomitant]
     Active Substance: METFORMIN HYDROCHLORIDE
     Dosage: 1000 MG, QD (AFTER BREAKFAST)
     Dates: start: 20181114
  7. METFORMIN [Concomitant]
     Active Substance: METFORMIN HYDROCHLORIDE
     Dosage: 1000 MG, BID (AFTER SUPPER AND AFTER BREAKFAST)
     Dates: start: 20181101
  8. BETACOR [BETAMETHASONE] [Concomitant]
     Dosage: UNK
     Dates: start: 20181114

REACTIONS (7)
  - Hyperhidrosis [Not Recovered/Not Resolved]
  - Insomnia [Not Recovered/Not Resolved]
  - Pyrexia [Recovered/Resolved]
  - Nasal congestion [Not Recovered/Not Resolved]
  - Cough [Not Recovered/Not Resolved]
  - Sinus disorder [Not Recovered/Not Resolved]
  - Headache [Recovered/Resolved]

NARRATIVE: CASE EVENT DATE: 20181108
